FAERS Safety Report 21322493 (Version 1)
Quarter: 2022Q3

REPORT INFORMATION
  Report Type: Spontaneous
  Country: ES (occurrence: ES)
  Receive Date: 20220912
  Receipt Date: 20220912
  Transmission Date: 20221027
  Serious: Yes (Hospitalization, Other)
  Sender: FDA-Public Use
  Company Number: ES-MYLANLABS-2022M1092312

PATIENT
  Age: 23 Year
  Sex: Male

DRUGS (5)
  1. SERTRALINE [Suspect]
     Active Substance: SERTRALINE HYDROCHLORIDE
     Indication: Obsessive-compulsive disorder
     Dosage: 2 DOSAGE FORM, QD (2 TABLETS DAILY, START DATE: FEB/MAR 2021)
     Route: 048
     Dates: start: 2021
  2. SERTRALINE [Suspect]
     Active Substance: SERTRALINE HYDROCHLORIDE
     Dosage: UNK (REDUCED DOSE FROM 200 MG TO 100 MG OF SERTRALINA VIATRIS)
     Route: 048
     Dates: start: 202206
  3. SERTRALINE [Suspect]
     Active Substance: SERTRALINE HYDROCHLORIDE
     Dosage: UNK (REDUCED THE DOSE FROM 100 MG TO 50 MG)
     Route: 048
     Dates: start: 202207
  4. OLANZAPINE [Concomitant]
     Active Substance: OLANZAPINE
     Dosage: UNK
     Route: 065
     Dates: start: 202109, end: 202110
  5. CLOZAPINE [Concomitant]
     Active Substance: CLOZAPINE
     Dosage: UNK
     Route: 065
     Dates: start: 202109

REACTIONS (4)
  - Delirium [Recovered/Resolved]
  - Hallucination, auditory [Unknown]
  - Refraction disorder [Unknown]
  - Intentional product use issue [Unknown]

NARRATIVE: CASE EVENT DATE: 20210901
